FAERS Safety Report 11241669 (Version 1)
Quarter: 2015Q3

REPORT INFORMATION
  Report Type: Report from Study
  Country: FR (occurrence: FR)
  Receive Date: 20150706
  Receipt Date: 20150706
  Transmission Date: 20151125
  Serious: Yes (Hospitalization)
  Sender: FDA-Public Use
  Company Number: FR-GLAXOSMITHKLINE-FR2015GSK094440

PATIENT
  Age: 67 Year
  Sex: Male

DRUGS (6)
  1. KARDEGIC [Concomitant]
     Active Substance: ASPIRIN LYSINE
  2. TRIATEC [Concomitant]
     Active Substance: RAMIPRIL
  3. OMEGA-3-ACID ETHYL ESTERS. [Suspect]
     Active Substance: OMEGA-3-ACID ETHYL ESTERS
     Indication: ISCHAEMIC HEART DISEASE PROPHYLAXIS
     Dosage: UNK
     Dates: start: 20060719, end: 20120708
  4. PLAVIX [Concomitant]
     Active Substance: CLOPIDOGREL BISULFATE
  5. CARDENSIEL [Concomitant]
     Active Substance: BISOPROLOL FUMARATE
  6. SIMVASTATINE [Concomitant]
     Active Substance: SIMVASTATIN

REACTIONS (1)
  - Dyspnoea [Unknown]

NARRATIVE: CASE EVENT DATE: 20110309
